FAERS Safety Report 13536694 (Version 1)
Quarter: 2017Q2

REPORT INFORMATION
  Report Type: Report from Study
  Country: US (occurrence: US)
  Receive Date: 20170511
  Receipt Date: 20170511
  Transmission Date: 20170830
  Serious: Yes (Other)
  Sender: FDA-Public Use
  Company Number: US-AMGEN-USASL2017070220

PATIENT
  Age: 92 Year
  Sex: Male

DRUGS (2)
  1. XGEVA [Concomitant]
     Active Substance: DENOSUMAB
     Dosage: UNK UNK, Q3MO
     Route: 058
     Dates: start: 20160627, end: 20160627
  2. PROCRIT [Suspect]
     Active Substance: ERYTHROPOIETIN
     Indication: PRODUCT USED FOR UNKNOWN INDICATION
     Dosage: 40K, QWK
     Route: 065
     Dates: start: 20151102

REACTIONS (5)
  - Waldenstrom^s macroglobulinaemia [Unknown]
  - Lymphoma [Unknown]
  - Iron deficiency anaemia [Unknown]
  - Hypercalcaemia [Unknown]
  - Gastrointestinal disorder [Unknown]

NARRATIVE: CASE EVENT DATE: 20151223
